FAERS Safety Report 9752093 (Version 6)
Quarter: 2014Q4

REPORT INFORMATION
  Report Type: Report from Study
  Country: NL (occurrence: NL)
  Receive Date: 20131213
  Receipt Date: 20141023
  Transmission Date: 20150529
  Serious: Yes (Death, Life-Threatening, Hospitalization, Other)
  Sender: FDA-Public Use
  Company Number: PHHO2012NL002238

PATIENT
  Age: 59 Year
  Sex: Female
  Weight: 67 kg

DRUGS (8)
  1. MYFORTIC [Suspect]
     Active Substance: MYCOPHENOLATE SODIUM
     Indication: RENAL TRANSPLANT
     Dosage: 2 X 540 (UNKNOWN)
     Dates: start: 20110220, end: 20111119
  2. PROGRAF [Suspect]
     Active Substance: TACROLIMUS\TACROLIMUS ANHYDROUS
     Indication: RENAL TRANSPLANT
     Dosage: 2 X 3.5 (UNKNOWN)
     Route: 048
     Dates: start: 20110120, end: 20111119
  3. PREDNISOLON [Concomitant]
     Active Substance: PREDNISOLONE
     Dosage: 20 MG, BID
  4. ENALAPRIL [Concomitant]
     Active Substance: ENALAPRIL
     Dosage: UNK
  5. PROGRAF [Suspect]
     Active Substance: TACROLIMUS\TACROLIMUS ANHYDROUS
     Dosage: 2 MG, BID
     Route: 048
     Dates: start: 20111121, end: 20120103
  6. PREDNISOLON [Concomitant]
     Active Substance: PREDNISOLONE
     Indication: RENAL TRANSPLANT
     Dosage: 5 MG, BID
     Dates: start: 20110120, end: 20111119
  7. HYDROCHLOROTHIAZIDE. [Concomitant]
     Active Substance: HYDROCHLOROTHIAZIDE
  8. MYFORTIC [Suspect]
     Active Substance: MYCOPHENOLATE SODIUM
     Dosage: 2 X 540 (UNKNOWN)
     Dates: start: 20111212, end: 20111228

REACTIONS (10)
  - Diarrhoea [Recovered/Resolved]
  - Hydronephrosis [Unknown]
  - Nervous system disorder [Fatal]
  - Oedema peripheral [Unknown]
  - Urosepsis [Recovered/Resolved]
  - Lung neoplasm malignant [Unknown]
  - Acute kidney injury [Recovered/Resolved]
  - Peritonitis [Recovered/Resolved]
  - Dehydration [Unknown]
  - Gastroenteritis [Recovered/Resolved]

NARRATIVE: CASE EVENT DATE: 20111120
